FAERS Safety Report 6031280-7 (Version None)
Quarter: 2008Q4

REPORT INFORMATION
  Report Type: 
  Country: None (occurrence: None)
  Receive Date: 20081222
  Receipt Date: 20081110
  Transmission Date: 20090506
  Serious: Yes (Life-Threatening, Other)
  Sender: FDA-Public Use
  Company Number: US-WYE-H06803108

PATIENT
  Age: 22 Year
  Sex: Female

DRUGS (1)
  1. PRISTIQ [Suspect]
     Indication: MAJOR DEPRESSION
     Dosage: 50 MG 1X PER 1 DAY, ORAL
     Route: 048

REACTIONS (2)
  - CONVULSION [None]
  - TACHYCARDIA [None]
